FAERS Safety Report 17559838 (Version 3)
Quarter: 2021Q1

REPORT INFORMATION
  Report Type: Spontaneous
  Country: JP (occurrence: JP)
  Receive Date: 20200319
  Receipt Date: 20210329
  Transmission Date: 20210419
  Serious: Yes (Death, Hospitalization, Other)
  Sender: FDA-Public Use
  Company Number: JP-009507513-2003JPN001657J

PATIENT
  Age: 66 Year
  Sex: Male
  Weight: 58 kg

DRUGS (4)
  1. KEYTRUDA [Suspect]
     Active Substance: PEMBROLIZUMAB
     Dosage: 200 MILLIGRAM, Q3W
     Route: 041
     Dates: start: 20200213, end: 20200213
  2. CARBOPLATIN. [Suspect]
     Active Substance: CARBOPLATIN
     Indication: LUNG SQUAMOUS CELL CARCINOMA STAGE IV
     Dosage: AUC3, Q3W
     Route: 041
     Dates: start: 20191224, end: 20200213
  3. KEYTRUDA [Suspect]
     Active Substance: PEMBROLIZUMAB
     Indication: LUNG SQUAMOUS CELL CARCINOMA STAGE IV
     Dosage: 200 MILLIGRAM, Q3W
     Route: 041
     Dates: start: 20191224, end: 20191224
  4. PACLITAXEL ALBUMIN [Suspect]
     Active Substance: PACLITAXEL
     Indication: LUNG SQUAMOUS CELL CARCINOMA STAGE IV
     Dosage: 50 MILLIGRAM/SQ. METER, QW
     Route: 041
     Dates: start: 20191224, end: 20200213

REACTIONS (4)
  - Immune-mediated hepatic disorder [Recovered/Resolved]
  - Off label use [Unknown]
  - Malignant neoplasm progression [Fatal]
  - Immune thrombocytopenia [Recovered/Resolved]

NARRATIVE: CASE EVENT DATE: 2020
